FAERS Safety Report 18041772 (Version 1)
Quarter: 2020Q3

REPORT INFORMATION
  Report Type: Spontaneous
  Country: FR (occurrence: FR)
  Receive Date: 20200720
  Receipt Date: 20200720
  Transmission Date: 20201103
  Serious: Yes (Hospitalization)
  Sender: FDA-Public Use
  Company Number: FR-TEVA-2020-FR-1800966

PATIENT
  Age: 32 Year
  Sex: Male

DRUGS (3)
  1. LYRICA [Suspect]
     Active Substance: PREGABALIN
     Route: 048
  2. XANAX [Suspect]
     Active Substance: ALPRAZOLAM
     Route: 048
  3. TRAMADOL (CHLORHYDRATE DE) [Suspect]
     Active Substance: TRAMADOL HYDROCHLORIDE
     Route: 048

REACTIONS (3)
  - Withdrawal syndrome [Recovered/Resolved]
  - Product substitution [Recovered/Resolved]
  - Drug dependence [Recovering/Resolving]
